FAERS Safety Report 25892337 (Version 1)
Quarter: 2025Q4

REPORT INFORMATION
  Report Type: Report from Study
  Country: EU (occurrence: EU)
  Receive Date: 20251007
  Receipt Date: 20251007
  Transmission Date: 20260118
  Serious: Yes (Other)
  Sender: MYLAN
  Company Number: None

PATIENT
  Age: 86 Year
  Sex: Female

DRUGS (16)
  1. NORVASC [Suspect]
     Active Substance: AMLODIPINE BESYLATE
     Indication: Product used for unknown indication
     Dosage: 5 MILLIGRAM (5 MG SUSPENDED SINCE 20/27)
  2. NORVASC [Suspect]
     Active Substance: AMLODIPINE BESYLATE
     Dosage: 5 MILLIGRAM (5 MG SUSPENDED SINCE 20/27)
     Route: 048
  3. NORVASC [Suspect]
     Active Substance: AMLODIPINE BESYLATE
     Dosage: 5 MILLIGRAM (5 MG SUSPENDED SINCE 20/27)
     Route: 048
  4. NORVASC [Suspect]
     Active Substance: AMLODIPINE BESYLATE
     Dosage: 5 MILLIGRAM (5 MG SUSPENDED SINCE 20/27)
  5. LASIX [Suspect]
     Active Substance: FUROSEMIDE
     Indication: Product used for unknown indication
     Dosage: UNK (DOSAGES NOT PRESENT, RECENTLY INTRODUCED, BUT THE PATIENT^S ADHERENCE TO THERAPY IS NOT OPTIMAL.)
  6. LASIX [Suspect]
     Active Substance: FUROSEMIDE
     Dosage: UNK (DOSAGES NOT PRESENT, RECENTLY INTRODUCED, BUT THE PATIENT^S ADHERENCE TO THERAPY IS NOT OPTIMAL.)
     Route: 048
  7. LASIX [Suspect]
     Active Substance: FUROSEMIDE
     Dosage: UNK (DOSAGES NOT PRESENT, RECENTLY INTRODUCED, BUT THE PATIENT^S ADHERENCE TO THERAPY IS NOT OPTIMAL.)
     Route: 048
  8. LASIX [Suspect]
     Active Substance: FUROSEMIDE
     Dosage: UNK (DOSAGES NOT PRESENT, RECENTLY INTRODUCED, BUT THE PATIENT^S ADHERENCE TO THERAPY IS NOT OPTIMAL.)
  9. CLONIDINE [Suspect]
     Active Substance: CLONIDINE
     Indication: Product used for unknown indication
     Dosage: UNK (DOSAGE NOT AVAILABLE)
  10. CLONIDINE [Suspect]
     Active Substance: CLONIDINE
     Dosage: UNK (DOSAGE NOT AVAILABLE)
     Route: 048
  11. CLONIDINE [Suspect]
     Active Substance: CLONIDINE
     Dosage: UNK (DOSAGE NOT AVAILABLE)
     Route: 048
  12. CLONIDINE [Suspect]
     Active Substance: CLONIDINE
     Dosage: UNK (DOSAGE NOT AVAILABLE)
  13. ROSUVASTATIN [Concomitant]
     Active Substance: ROSUVASTATIN
     Dosage: 5 MILLIGRAM, QD (5 MG DAILY )
     Dates: start: 20250101
  14. ROSUVASTATIN [Concomitant]
     Active Substance: ROSUVASTATIN
     Dosage: 5 MILLIGRAM, QD (5 MG DAILY )
     Route: 048
     Dates: start: 20250101
  15. ROSUVASTATIN [Concomitant]
     Active Substance: ROSUVASTATIN
     Dosage: 5 MILLIGRAM, QD (5 MG DAILY )
     Route: 048
     Dates: start: 20250101
  16. ROSUVASTATIN [Concomitant]
     Active Substance: ROSUVASTATIN
     Dosage: 5 MILLIGRAM, QD (5 MG DAILY )
     Dates: start: 20250101

REACTIONS (1)
  - Treatment failure [Unknown]

NARRATIVE: CASE EVENT DATE: 20250810
